FAERS Safety Report 16287326 (Version 1)
Quarter: 2019Q2

REPORT INFORMATION
  Report Type: Report from Study
  Country: US (occurrence: US)
  Receive Date: 20190508
  Receipt Date: 20190508
  Transmission Date: 20190711
  Serious: Yes (Hospitalization)
  Sender: FDA-Public Use
  Company Number: US-ACTELION-A-US2018-179944

PATIENT
  Age: 66 Year
  Sex: Female

DRUGS (2)
  1. OPSUMIT [Suspect]
     Active Substance: MACITENTAN
     Indication: PRODUCT USED FOR UNKNOWN INDICATION
     Dosage: 10 MG, QD
     Route: 048
     Dates: start: 20180827
  2. LISINOPRIL. [Suspect]
     Active Substance: LISINOPRIL
     Indication: PRODUCT USED FOR UNKNOWN INDICATION
     Route: 065

REACTIONS (11)
  - Nasal congestion [Unknown]
  - Condition aggravated [Unknown]
  - Bloody discharge [Recovered/Resolved]
  - Haemoptysis [Recovered/Resolved]
  - Rhinorrhoea [Unknown]
  - Pneumonitis [Unknown]
  - Peripheral swelling [Unknown]
  - Secretion discharge [Recovered/Resolved]
  - Cough [Recovered/Resolved]
  - Pulmonary oedema [Unknown]
  - Pneumonia [Recovered/Resolved]

NARRATIVE: CASE EVENT DATE: 20181029
